FAERS Safety Report 20036192 (Version 1)
Quarter: 2021Q4

REPORT INFORMATION
  Report Type: Spontaneous
  Country: US (occurrence: US)
  Receive Date: 20211105
  Receipt Date: 20211105
  Transmission Date: 20220304
  Serious: Yes (Hospitalization)
  Sender: FDA-Public Use
  Company Number: US-PROCTER_AND_GAMBLE-PH21009891

PATIENT
  Age: 30 Year
  Sex: Male

DRUGS (1)
  1. ALCOHOL ANTIBACTERIAL GEL(NONE-RINSE) [Suspect]
     Active Substance: ALCOHOL
     Dosage: INGESTED ETHANOL-BASED HAND SANITIZER
     Route: 048

REACTIONS (5)
  - Alcohol poisoning [Not Recovered/Not Resolved]
  - Blood alcohol increased [Not Recovered/Not Resolved]
  - Intentional product use issue [Unknown]
  - Incorrect route of product administration [Unknown]
  - Exposure via ingestion [Unknown]
